FAERS Safety Report 18062416 (Version 2)
Quarter: 2020Q3

REPORT INFORMATION
  Report Type: Spontaneous
  Country: US (occurrence: US)
  Receive Date: 20200724
  Receipt Date: 20200727
  Transmission Date: 20201103
  Serious: No
  Sender: FDA-Public Use
  Company Number: US-JNJFOC-20200727691

PATIENT
  Sex: Male

DRUGS (1)
  1. VISINE TOTALITY MULTI SYMPTOM RELIEF [Suspect]
     Active Substance: GLYCERIN\HYPROMELLOSES\POLYETHYLENE GLYCOL 400\TETRAHYDROZOLINE HYDROCHLORIDE\ZINC SULFATE
     Indication: HYPERSENSITIVITY
     Route: 065

REACTIONS (4)
  - Product use in unapproved indication [Unknown]
  - Impaired driving ability [Unknown]
  - Visual impairment [Unknown]
  - Eye irritation [Unknown]
